FAERS Safety Report 6449501-5 (Version None)
Quarter: 2009Q4

REPORT INFORMATION
  Report Type: 
  Country: None (occurrence: None)
  Receive Date: 20091120
  Receipt Date: 20091109
  Transmission Date: 20100525
  Serious: No
  Sender: FDA-Public Use
  Company Number: FR-ELI_LILLY_AND_COMPANY-FR200911002347

PATIENT
  Sex: Male

DRUGS (4)
  1. CYMBALTA [Suspect]
     Indication: DEPRESSION
     Dosage: 60 MG, DAILY (1/D)
     Route: 048
     Dates: start: 20090401, end: 20090601
  2. ZYPREXA [Concomitant]
     Dosage: 5 MG, DAILY (1/D)
  3. DEPAKOTE [Concomitant]
     Dosage: 250 MG, 3/D
  4. SERESTA [Concomitant]
     Dosage: 10 MG, EACH EVENING

REACTIONS (2)
  - DRUG INEFFECTIVE [None]
  - TRANSAMINASES INCREASED [None]
